FAERS Safety Report 23531638 (Version 1)
Quarter: 2024Q1

REPORT INFORMATION
  Report Type: Spontaneous
  Country: US (occurrence: US)
  Receive Date: 20240216
  Receipt Date: 20240216
  Transmission Date: 20240410
  Serious: No
  Sender: FDA-Public Use
  Company Number: US-ABBVIE-5633488

PATIENT
  Sex: Female

DRUGS (7)
  1. BOTOX COSMETIC [Suspect]
     Active Substance: ONABOTULINUMTOXINA
     Indication: Excessive gingival display
     Dosage: TIME INTERVAL: AS NECESSARY: 4 UNITS
     Route: 065
     Dates: start: 202401, end: 202401
  2. BOTOX COSMETIC [Suspect]
     Active Substance: ONABOTULINUMTOXINA
     Indication: Excessive gingival display
     Dosage: TIME INTERVAL: AS NECESSARY: 17 UNITS
     Route: 065
     Dates: start: 202401, end: 202401
  3. BOTOX COSMETIC [Suspect]
     Active Substance: ONABOTULINUMTOXINA
     Indication: Excessive gingival display
     Dosage: TIME INTERVAL: AS NECESSARY: 8 UNITS
     Route: 065
     Dates: start: 202401, end: 202401
  4. BOTOX COSMETIC [Suspect]
     Active Substance: ONABOTULINUMTOXINA
     Indication: Excessive gingival display
     Dosage: TIME INTERVAL: AS NECESSARY: 25 UNITS
     Route: 065
     Dates: start: 202401, end: 202401
  5. BOTOX COSMETIC [Suspect]
     Active Substance: ONABOTULINUMTOXINA
     Indication: Excessive gingival display
     Dosage: TIME INTERVAL: AS NECESSARY: 24 UNITS
     Route: 065
     Dates: start: 202401, end: 202401
  6. BENADRYL [Concomitant]
     Active Substance: DIPHENHYDRAMINE HYDROCHLORIDE
     Indication: Product used for unknown indication
  7. FAMOTIDINE [Concomitant]
     Active Substance: FAMOTIDINE
     Indication: Product used for unknown indication

REACTIONS (12)
  - Lip oedema [Unknown]
  - Lip erythema [Unknown]
  - Lip dry [Unknown]
  - Chapped lips [Unknown]
  - Oral discomfort [Unknown]
  - Cheilitis [Unknown]
  - Lip pain [Unknown]
  - Lip pain [Unknown]
  - Lip exfoliation [Unknown]
  - Stress at work [Unknown]
  - Sleep disorder [Unknown]
  - Restless legs syndrome [Unknown]

NARRATIVE: CASE EVENT DATE: 20240101
